FAERS Safety Report 21376530 (Version 2)
Quarter: 2022Q4

REPORT INFORMATION
  Report Type: Spontaneous
  Country: CN (occurrence: CN)
  Receive Date: 20220926
  Receipt Date: 20221128
  Transmission Date: 20230113
  Serious: Yes (Life-Threatening, Other)
  Sender: FDA-Public Use
  Company Number: CN-FOSUNKITE-FOSUNKITE-20220382

PATIENT
  Age: 43 Year
  Sex: Male

DRUGS (1)
  1. YESCARTA [Suspect]
     Active Substance: AXICABTAGENE CILOLEUCEL
     Indication: Diffuse large B-cell lymphoma recurrent
     Route: 041

REACTIONS (4)
  - Hyperpyrexia [Unknown]
  - Shock [Unknown]
  - Blood fibrinogen decreased [Unknown]
  - Globulins decreased [Unknown]

NARRATIVE: CASE EVENT DATE: 20220902
